FAERS Safety Report 10205972 (Version 1)
Quarter: 2014Q2

REPORT INFORMATION
  Report Type: Spontaneous
  Country: US (occurrence: None)
  Receive Date: 20140527
  Receipt Date: 20140527
  Transmission Date: 20141212
  Serious: Yes (Hospitalization)
  Sender: FDA-Public Use
  Company Number: None

PATIENT
  Age: 65 Year
  Sex: Male

DRUGS (14)
  1. HEPARIN [Suspect]
     Indication: ATRIAL FIBRILLATION
     Dosage: 2500 UNITS UNKNOWN IV
     Route: 042
     Dates: start: 20120129, end: 20120208
  2. ACETAMINOPHIN [Concomitant]
  3. AMIODARONE [Concomitant]
  4. ASPIRIN [Concomitant]
  5. CARVEDILOL [Concomitant]
  6. CEFEPIME [Concomitant]
  7. DIGOXIN [Concomitant]
  8. ENALAPRIL [Concomitant]
  9. FUROSEMIDE [Concomitant]
  10. HYDRALAZINE [Concomitant]
  11. INSULIN ASPART [Concomitant]
  12. ISOSORBIDE DINITRATE [Concomitant]
  13. VANCOMYCIN [Concomitant]
  14. WARFARIN [Concomitant]

REACTIONS (1)
  - Platelet count decreased [None]
